FAERS Safety Report 8937059 (Version 1)
Quarter: 2012Q4

REPORT INFORMATION
  Report Type: 
  Country: CN (occurrence: CN)
  Receive Date: 20121129
  Receipt Date: 20121129
  Transmission Date: 20130627
  Serious: Yes (Other)
  Sender: FDA-Public Use
  Company Number: PHHY2012CN108366

PATIENT
  Age: 71 Year
  Sex: Male

DRUGS (1)
  1. TEGRETOL [Suspect]
     Indication: EPILEPSY
     Dosage: 100 mg, TID
     Dates: start: 20100330, end: 20100404

REACTIONS (3)
  - Conjunctival haemorrhage [Recovered/Resolved]
  - Haemorrhage [Unknown]
  - Thrombocytopenia [Unknown]
